FAERS Safety Report 23844966 (Version 1)
Quarter: 2024Q2

REPORT INFORMATION
  Report Type: Spontaneous
  Country: US (occurrence: US)
  Receive Date: 20240511
  Receipt Date: 20240511
  Transmission Date: 20240716
  Serious: Yes (Other)
  Sender: FDA-Public Use
  Company Number: US-EPICPHARMA-US-2024EPCLIT00442

PATIENT
  Age: 45 Year
  Sex: Female

DRUGS (15)
  1. METFORMIN HYDROCHLORIDE [Suspect]
     Active Substance: METFORMIN HYDROCHLORIDE
     Indication: Product used for unknown indication
     Route: 065
  2. MELATONIN [Suspect]
     Active Substance: MELATONIN
     Indication: Product used for unknown indication
     Route: 065
  3. TOPIRAMATE [Suspect]
     Active Substance: TOPIRAMATE
     Indication: Product used for unknown indication
     Route: 065
  4. NALTREXONE [Suspect]
     Active Substance: NALTREXONE
     Indication: Product used for unknown indication
     Route: 065
  5. SEMAGLUTIDE [Suspect]
     Active Substance: SEMAGLUTIDE
     Indication: Product used for unknown indication
     Route: 065
  6. LITHIUM [Concomitant]
     Active Substance: LITHIUM
     Route: 065
  7. LAMOTRIGINE [Concomitant]
     Active Substance: LAMOTRIGINE
     Route: 065
  8. QUETIAPINE [Concomitant]
     Active Substance: QUETIAPINE
     Route: 065
  9. CLOZAPINE [Concomitant]
     Active Substance: CLOZAPINE
     Route: 065
  10. OLANZAPINE [Concomitant]
     Active Substance: OLANZAPINE
     Route: 065
  11. OLANZAPINE [Concomitant]
     Active Substance: OLANZAPINE
     Indication: Bipolar I disorder
     Route: 065
  12. OLANZAPINE [Concomitant]
     Active Substance: OLANZAPINE
     Indication: Borderline personality disorder
  13. OLANZAPINE [Concomitant]
     Active Substance: OLANZAPINE
  14. OLANZAPINE\SAMIDORPHAN [Concomitant]
     Active Substance: OLANZAPINE\SAMIDORPHAN
     Indication: Sedation
     Dosage: 20MG/10MG
     Route: 065
  15. OLANZAPINE\SAMIDORPHAN [Concomitant]
     Active Substance: OLANZAPINE\SAMIDORPHAN
     Dosage: LOWERED
     Route: 065

REACTIONS (3)
  - Suicidal ideation [Unknown]
  - Impaired gastric emptying [Unknown]
  - Nausea [Unknown]
